FAERS Safety Report 10778226 (Version 8)
Quarter: 2015Q4

REPORT INFORMATION
  Report Type: Report from Study
  Country: US (occurrence: US)
  Receive Date: 20150209
  Receipt Date: 20151023
  Transmission Date: 20160304
  Serious: Yes (Hospitalization, Other)
  Sender: FDA-Public Use
  Company Number: US-GILEAD-2015-0135923

PATIENT
  Age: 59 Year
  Sex: Female

DRUGS (4)
  1. ADCIRCA [Concomitant]
     Active Substance: TADALAFIL
  2. AMBRISENTAN [Suspect]
     Active Substance: AMBRISENTAN
     Indication: PULMONARY ARTERIAL HYPERTENSION
     Dosage: 5 MG, QD
     Route: 065
     Dates: start: 20120410
  3. TYVASO [Concomitant]
     Active Substance: TREPROSTINIL
  4. AMBRISENTAN [Suspect]
     Active Substance: AMBRISENTAN
     Dosage: 5 MG,QD
     Route: 065

REACTIONS (17)
  - Unevaluable event [Not Recovered/Not Resolved]
  - Abdominal pain [Unknown]
  - Diaphragmatic hernia [Unknown]
  - Abdominal operation [Unknown]
  - Colectomy [Unknown]
  - Thoracic outlet syndrome [Unknown]
  - Gait disturbance [Not Recovered/Not Resolved]
  - Exercise tolerance decreased [Not Recovered/Not Resolved]
  - Bipolar disorder [Not Recovered/Not Resolved]
  - Vomiting [Unknown]
  - Haematoma [Unknown]
  - Pneumothorax [Unknown]
  - Pain [Unknown]
  - Unevaluable event [Unknown]
  - Dizziness postural [Unknown]
  - Lipoma [Unknown]
  - Wound [Unknown]

NARRATIVE: CASE EVENT DATE: 201501
